FAERS Safety Report 14543414 (Version 2)
Quarter: 2018Q1

REPORT INFORMATION
  Report Type: Spontaneous
  Country: ES (occurrence: ES)
  Receive Date: 20180216
  Receipt Date: 20180220
  Transmission Date: 20180509
  Serious: No
  Sender: FDA-Public Use
  Company Number: ES-BIOVERATIV-2017BV000134

PATIENT
  Age: 5 Year
  Sex: Male

DRUGS (1)
  1. ELOCTA [Suspect]
     Active Substance: EFMOROCTOCOG ALFA
     Indication: IMMUNE TOLERANCE INDUCTION
     Dosage: SWITCHED TO ELOCTA
     Route: 065
     Dates: start: 201706, end: 201711

REACTIONS (1)
  - Off label use [Unknown]
